FAERS Safety Report 6653735-4 (Version None)
Quarter: 2010Q1

REPORT INFORMATION
  Report Type: 
  Country: None (occurrence: None)
  Receive Date: 20100326
  Receipt Date: 20100318
  Transmission Date: 20100710
  Serious: Yes (Death)
  Sender: FDA-Public Use
  Company Number: JP-ROCHE-683817

PATIENT
  Sex: Female

DRUGS (2)
  1. TOCILIZUMAB [Suspect]
     Indication: RHEUMATOID ARTHRITIS
     Route: 041
     Dates: start: 20090420, end: 20090420
  2. DECADRON [Concomitant]
     Route: 048
     Dates: start: 20090128

REACTIONS (1)
  - HISTIOCYTOSIS HAEMATOPHAGIC [None]
